FAERS Safety Report 6973920-1 (Version None)
Quarter: 2010Q3

REPORT INFORMATION
  Report Type: 
  Country: None (occurrence: None)
  Receive Date: 20100907
  Receipt Date: 20100825
  Transmission Date: 20110219
  Serious: Yes (Other)
  Sender: FDA-Public Use
  Company Number: IND1-GB-2010-0087

PATIENT
  Sex: Male

DRUGS (1)
  1. INDOMETHACIN [Suspect]
     Indication: PRODUCT USED FOR UNKNOWN INDICATION

REACTIONS (2)
  - BLOOD SODIUM DECREASED [None]
  - TREMOR [None]
